FAERS Safety Report 14933807 (Version 1)
Quarter: 2018Q2

REPORT INFORMATION
  Report Type: Spontaneous
  Country: US (occurrence: US)
  Receive Date: 20180524
  Receipt Date: 20180524
  Transmission Date: 20180711
  Serious: No
  Sender: FDA-Public Use
  Company Number: US-TARO-2017TAR01019

PATIENT
  Age: 13 Month
  Sex: Female

DRUGS (2)
  1. FEVERALL INFANTS [Suspect]
     Active Substance: ACETAMINOPHEN
     Indication: COUGH
     Dosage: 1 DOSAGE UNITS, ONCE
     Dates: start: 20171122, end: 20171122
  2. FEVERALL INFANTS [Suspect]
     Active Substance: ACETAMINOPHEN
     Indication: NASOPHARYNGITIS
     Dosage: UNK, ONCE
     Route: 048
     Dates: start: 20171123, end: 20171123

REACTIONS (3)
  - Drug ineffective for unapproved indication [Not Recovered/Not Resolved]
  - Accidental exposure to product packaging by child [Recovered/Resolved]
  - Vomiting [Not Recovered/Not Resolved]

NARRATIVE: CASE EVENT DATE: 201711
